FAERS Safety Report 5048913-4 (Version None)
Quarter: 2006Q3

REPORT INFORMATION
  Report Type: 
  Country: None (occurrence: None)
  Receive Date: 20060712
  Receipt Date: 20050810
  Transmission Date: 20061208
  Serious: No
  Sender: FDA-Public Use
  Company Number: US-GLAXOSMITHKLINE-A0569684A

PATIENT
  Sex: Female

DRUGS (4)
  1. IMITREX [Suspect]
     Indication: MIGRAINE
     Dosage: 100MG AS REQUIRED
     Route: 048
     Dates: start: 19960101
  2. VITAMINS [Concomitant]
  3. B-12 [Concomitant]
  4. PHENERGAN HCL [Concomitant]
     Route: 065

REACTIONS (2)
  - DYSPEPSIA [None]
  - HEADACHE [None]
